FAERS Safety Report 9127455 (Version 2)
Quarter: 2013Q2

REPORT INFORMATION
  Report Type: Report from Study
  Country: US (occurrence: US)
  Receive Date: 20130228
  Receipt Date: 20130422
  Transmission Date: 20140414
  Serious: Yes (Hospitalization, Other)
  Sender: FDA-Public Use
  Company Number: US-ASTELLAS-2013US002183

PATIENT
  Age: 48 Year
  Sex: Female

DRUGS (3)
  1. ERLOTINIB TABLET [Suspect]
     Indication: LUNG CARCINOMA CELL TYPE UNSPECIFIED STAGE 0
     Dosage: 150 MG, UID/QD
     Route: 048
     Dates: start: 20130114
  2. NARCOTICS [Concomitant]
     Indication: NECK PAIN
     Dosage: UNK
     Route: 065
  3. NARCOTICS [Concomitant]
     Indication: BACK PAIN

REACTIONS (2)
  - Road traffic accident [Unknown]
  - Metastases to central nervous system [Unknown]
